FAERS Safety Report 18933555 (Version 1)
Quarter: 2021Q1

REPORT INFORMATION
  Report Type: Report from Study
  Country: AU (occurrence: AU)
  Receive Date: 20210224
  Receipt Date: 20210224
  Transmission Date: 20210420
  Serious: Yes (Other)
  Sender: FDA-Public Use
  Company Number: AU-TOLMAR, INC.-2019AU004946

PATIENT
  Sex: Male

DRUGS (1)
  1. ELIGARD [Suspect]
     Active Substance: LEUPROLIDE ACETATE
     Indication: PROSTATE CANCER
     Dosage: 22.5 MG, Q 3 MONTH
     Route: 058
     Dates: start: 20190218

REACTIONS (9)
  - Depression [Unknown]
  - Alopecia [Unknown]
  - Paraesthesia [Unknown]
  - Hyperhidrosis [Unknown]
  - Gynaecomastia [Unknown]
  - Cellulitis [Unknown]
  - Testicular atrophy [Unknown]
  - Libido decreased [Unknown]
  - Fatigue [Unknown]
